FAERS Safety Report 19022435 (Version 1)
Quarter: 2021Q1

REPORT INFORMATION
  Report Type: Spontaneous
  Country: US (occurrence: US)
  Receive Date: 20210318
  Receipt Date: 20210318
  Transmission Date: 20210420
  Serious: Yes (Hospitalization)
  Sender: FDA-Public Use
  Company Number: US-STRIDES ARCOLAB LIMITED-2021SP002365

PATIENT
  Age: 63 Year
  Sex: Female

DRUGS (2)
  1. PREDNISOLONE. [Suspect]
     Active Substance: PREDNISOLONE
     Indication: PLEUROPERICARDITIS
     Dosage: UNK
     Route: 065
  2. MYCOPHENOLATE MOFETIL. [Suspect]
     Active Substance: MYCOPHENOLATE MOFETIL
     Indication: PLEUROPERICARDITIS
     Dosage: UNK
     Route: 065

REACTIONS (5)
  - Histoplasmosis disseminated [Not Recovered/Not Resolved]
  - Meningitis histoplasma [Unknown]
  - Off label use [Unknown]
  - Dengue fever [Recovered/Resolved]
  - Pneumonia [Recovered/Resolved]
